FAERS Safety Report 7198766-3 (Version None)
Quarter: 2010Q4

REPORT INFORMATION
  Report Type: 
  Country: None (occurrence: None)
  Receive Date: 20101227
  Receipt Date: 20101116
  Transmission Date: 20110411
  Serious: No
  Sender: FDA-Public Use
  Company Number: US-ABBOTT-10P-163-0686249-00

PATIENT
  Sex: Male
  Weight: 75.364 kg

DRUGS (9)
  1. LUPRON DEPOT [Suspect]
     Indication: PROSTATE CANCER
     Dates: start: 20100801, end: 20100801
  2. UNKNOWN MEDICATION [Concomitant]
     Indication: PROSTATE CANCER
     Dates: start: 20100201, end: 20100201
  3. UNKNOWN MEDICATION [Concomitant]
  4. SIMVASTATIN [Concomitant]
     Indication: BLOOD CHOLESTEROL INCREASED
     Dosage: EVERY NIGHT
  5. ASPIRIN [Concomitant]
     Indication: PRODUCT USED FOR UNKNOWN INDICATION
  6. MULTIVITAMIN [Concomitant]
     Indication: PRODUCT USED FOR UNKNOWN INDICATION
  7. FLOMAX [Concomitant]
     Indication: URINARY TRACT DISORDER
     Dates: start: 20100801
  8. TOVIAZ [Concomitant]
     Indication: URINARY TRACT DISORDER
     Dates: start: 20100801
  9. TOVIAZ [Concomitant]

REACTIONS (3)
  - BACK PAIN [None]
  - HYPOAESTHESIA [None]
  - PAIN [None]
